FAERS Safety Report 8825586 (Version 1)
Quarter: 2012Q4

REPORT INFORMATION
  Report Type: 
  Country: AU (occurrence: AU)
  Receive Date: 20121004
  Receipt Date: 20121004
  Transmission Date: 20130627
  Serious: Yes (Other)
  Sender: FDA-Public Use
  Company Number: PHHY2012AU086687

PATIENT
  Sex: Female

DRUGS (1)
  1. ACLASTA [Suspect]
     Dosage: UNK
     Route: 042
     Dates: start: 201208

REACTIONS (5)
  - Neuritis [Unknown]
  - Tooth fracture [Unknown]
  - Toothache [Unknown]
  - Bruxism [Unknown]
  - Influenza like illness [Recovered/Resolved]
